FAERS Safety Report 26092262 (Version 1)
Quarter: 2025Q4

REPORT INFORMATION
  Report Type: Spontaneous
  Country: US (occurrence: US)
  Receive Date: 20251126
  Receipt Date: 20251126
  Transmission Date: 20260117
  Serious: Yes (Other)
  Sender: ABBVIE
  Company Number: US-ABBVIE-6561636

PATIENT
  Sex: Male

DRUGS (1)
  1. REFRESH TEARS [Suspect]
     Active Substance: CARBOXYMETHYLCELLULOSE SODIUM
     Indication: Dry eye
     Dosage: OPHTHALMIC?USES 3-4 BOTTLES OF REFRESH TEARS PER MONTH
     Route: 065

REACTIONS (5)
  - Blindness [Unknown]
  - Cataract [Unknown]
  - Cough [Unknown]
  - Pharyngeal disorder [Unknown]
  - Product packaging issue [Unknown]
